FAERS Safety Report 5204834-5 (Version None)
Quarter: 2007Q1

REPORT INFORMATION
  Report Type: 
  Country: None (occurrence: None)
  Receive Date: 20070110
  Receipt Date: 20060726
  Transmission Date: 20070707
  Serious: Yes (Other)
  Sender: FDA-Public Use
  Company Number: US-BRISTOL-MYERS SQUIBB COMPANY-13460746

PATIENT
  Age: 9 Year
  Sex: Female

DRUGS (3)
  1. ABILIFY [Suspect]
     Indication: POST-TRAUMATIC STRESS DISORDER
     Route: 048
     Dates: end: 20060717
  2. ABILIFY [Suspect]
     Indication: ATTENTION DEFICIT/HYPERACTIVITY DISORDER
     Route: 048
     Dates: end: 20060717
  3. ADDERALL 10 [Concomitant]

REACTIONS (1)
  - TARDIVE DYSKINESIA [None]
